FAERS Safety Report 20857921 (Version 2)
Quarter: 2022Q4

REPORT INFORMATION
  Report Type: Spontaneous
  Country: ES (occurrence: ES)
  Receive Date: 20220521
  Receipt Date: 20221004
  Transmission Date: 20230112
  Serious: Yes (Life-Threatening, Hospitalization)
  Sender: FDA-Public Use
  Company Number: None

PATIENT
  Age: 72 Year
  Sex: Female

DRUGS (5)
  1. ACETAMINOPHEN [Suspect]
     Active Substance: ACETAMINOPHEN
     Indication: Chemotherapy side effect prophylaxis
     Dosage: UNK (LAST DOSE DATE: 25 APR 2022)
     Route: 048
     Dates: start: 20220425
  2. OBINUTUZUMAB [Suspect]
     Active Substance: OBINUTUZUMAB
     Indication: B-cell small lymphocytic lymphoma stage I
     Dosage: 100 MG
     Route: 042
     Dates: start: 20220425, end: 20220425
  3. DEXCHLORPHENIRAMINE [Concomitant]
     Active Substance: DEXCHLORPHENIRAMINE
     Indication: Chemotherapy side effect prophylaxis
     Dosage: UNK (LAST DOSE DATE: 25-APR-2022)
     Route: 051
     Dates: start: 20220425
  4. METHYLPREDNISOLONE [Concomitant]
     Active Substance: METHYLPREDNISOLONE
     Indication: Chemotherapy side effect prophylaxis
     Dosage: UNK (LAST DOSE DATE: 25-APR-2022)
     Route: 051
     Dates: start: 20220425
  5. ALLOPURINOL [Concomitant]
     Active Substance: ALLOPURINOL
     Indication: Product used for unknown indication
     Dosage: 300 MG, QD
     Route: 065
     Dates: start: 20220424

REACTIONS (6)
  - Hepatitis [Unknown]
  - Hepatic cytolysis [Recovered/Resolved]
  - Hypertransaminasaemia [Recovering/Resolving]
  - Hypotension [Unknown]
  - Pyrexia [Recovered/Resolved]
  - Chills [Recovered/Resolved]

NARRATIVE: CASE EVENT DATE: 20220425
